FAERS Safety Report 8164379-X (Version None)
Quarter: 2012Q1

REPORT INFORMATION
  Report Type: 
  Country: None (occurrence: None)
  Receive Date: 20120224
  Receipt Date: 20120222
  Transmission Date: 20120608
  Serious: Yes (Hospitalization)
  Sender: FDA-Public Use
  Company Number: US-AMGEN-USASP2012011935

PATIENT
  Sex: Female

DRUGS (4)
  1. PROLIA [Suspect]
     Indication: OSTEOPOROSIS POSTMENOPAUSAL
     Dates: start: 20120217
  2. SYNTHROID [Concomitant]
  3. AGGRENOX [Concomitant]
  4. IRON [Concomitant]

REACTIONS (2)
  - HYPOPHOSPHATAEMIA [None]
  - HYPOCALCAEMIA [None]
